FAERS Safety Report 18797772 (Version 7)
Quarter: 2021Q2

REPORT INFORMATION
  Report Type: Spontaneous
  Country: JP (occurrence: JP)
  Receive Date: 20210128
  Receipt Date: 20210624
  Transmission Date: 20210717
  Serious: Yes (Hospitalization, Other)
  Sender: FDA-Public Use
  Company Number: JP-BRISTOL-MYERS SQUIBB COMPANY-BMS-2021-002763

PATIENT
  Age: 69 Year
  Sex: Male
  Weight: 57.3 kg

DRUGS (33)
  1. ELIQUIS [Suspect]
     Active Substance: APIXABAN
     Indication: PRODUCT USED FOR UNKNOWN INDICATION
     Dosage: AFTER BREAKFAST, DINNER
     Route: 065
     Dates: start: 20201208, end: 20201220
  2. CARBOPLATIN. [Suspect]
     Active Substance: CARBOPLATIN
     Dosage: 480 MILLIGRAM, ONE TIME DOSE
     Route: 065
     Dates: start: 20210115, end: 20210115
  3. HEPARINOID [Concomitant]
     Active Substance: CHONDROITIN SULFATE (BOVINE)
     Dosage: APPROPRIATE AMOUNT APPLICATION,SEVERAL TIMES A DAY,AFFECTED AREA,WHEN ITCHING,THE ITCHY SPOT
     Route: 065
     Dates: start: 20201220, end: 20201220
  4. LYRICA [Concomitant]
     Active Substance: PREGABALIN
     Indication: LUNG ADENOCARCINOMA
     Dosage: AFTER EVERY MEAL
     Route: 065
     Dates: start: 20201208, end: 20201221
  5. TRAMAL [Concomitant]
     Active Substance: TRAMADOL
     Indication: PRODUCT USED FOR UNKNOWN INDICATION
     Dosage: IN TIMES OF PAIN
     Route: 065
     Dates: start: 20201229, end: 20201229
  6. ALIMTA [Suspect]
     Active Substance: PEMETREXED DISODIUM
     Indication: LUNG ADENOCARCINOMA
     Dosage: UNK UNK, ONE TIME DOSE
     Route: 065
     Dates: start: 20201209, end: 20201209
  7. TRAMCET [Concomitant]
     Active Substance: ACETAMINOPHEN\TRAMADOL
     Indication: ADENOCARCINOMA
     Dosage: AFTER EVERY MEAL, BEFORE BEDTIME
     Route: 065
     Dates: start: 20201208, end: 20201225
  8. OXINORM [OXYCODONE HYDROCHLORIDE] [Concomitant]
     Active Substance: OXYCODONE HYDROCHLORIDE
     Dosage: IN TIMES OF PAIN
     Route: 065
     Dates: start: 20201221, end: 20201223
  9. OPDIVO [Suspect]
     Active Substance: NIVOLUMAB
     Dosage: 360 MILLIGRAM, ONE TIME DOSE
     Route: 041
     Dates: start: 20210303, end: 20210303
  10. YERVOY [Suspect]
     Active Substance: IPILIMUMAB
     Indication: LUNG ADENOCARCINOMA
     Dosage: UNK
     Route: 041
     Dates: start: 20201209, end: 20201220
  11. PROTECADIN [Concomitant]
     Active Substance: LAFUTIDINE
     Indication: PROPHYLAXIS
     Dosage: AFTER BREAKFAST
     Route: 065
     Dates: start: 20201221, end: 20201225
  12. HIRUDOID [Concomitant]
     Active Substance: GLYCOSAMINOGLYCANS
     Indication: PRODUCT USED FOR UNKNOWN INDICATION
     Dosage: UNK
     Route: 065
     Dates: start: 20201208
  13. OPDIVO [Suspect]
     Active Substance: NIVOLUMAB
     Dosage: 360 MILLIGRAM, ONE TIME DOSE
     Route: 041
     Dates: start: 20210512, end: 20210512
  14. OPDIVO [Suspect]
     Active Substance: NIVOLUMAB
     Dosage: 360 MILLIGRAM, ONE TIME DOSE
     Route: 041
     Dates: start: 20210115, end: 20210115
  15. YERVOY [Suspect]
     Active Substance: IPILIMUMAB
     Dosage: 57.3 MILLIGRAM, ONE TIME DOSE
     Route: 041
     Dates: start: 20210303, end: 20210303
  16. YERVOY [Suspect]
     Active Substance: IPILIMUMAB
     Dosage: 57.3 MILLIGRAM, ONE TIME DOSE
     Route: 041
     Dates: start: 20210512, end: 20210512
  17. CARBOPLATIN. [Suspect]
     Active Substance: CARBOPLATIN
     Indication: LUNG ADENOCARCINOMA
     Dosage: UNK UNK, ONE TIME DOSE
     Route: 065
     Dates: start: 20201209, end: 20201209
  18. HEPARINOID [Concomitant]
     Active Substance: CHONDROITIN SULFATE (BOVINE)
     Dosage: APPROPRIATE AMOUNT APPLICATION,SEVERAL TIMES A DAY,AFFECTED AREA,WHEN ITCHING,THE ITCHY SPOT
     Route: 065
     Dates: start: 20201227, end: 20201227
  19. NAUZELIN [Concomitant]
     Active Substance: DOMPERIDONE
     Indication: PRODUCT USED FOR UNKNOWN INDICATION
     Dosage: BEFORE EVERY MEAL,SELF?AJUSTABLE
     Route: 065
     Dates: start: 20201216, end: 20201220
  20. PROPETO [Concomitant]
     Active Substance: PETROLATUM
     Indication: PRODUCT USED FOR UNKNOWN INDICATION
     Dosage: APPROPRIATE AMOUNT APPLICATION,SEVERAL TIMES A DAY,AFFECTED AREA
     Route: 065
     Dates: start: 20201218, end: 20201218
  21. PANVITAN [ASCORBIC ACID;CALCIUM PANTOTHENATE;CYANOCOBALAMIN;ERGOCALCIF [Concomitant]
     Indication: PROPHYLAXIS
     Dosage: AFTER BREAKFAST
     Route: 065
     Dates: start: 20201209, end: 20201229
  22. YERVOY [Suspect]
     Active Substance: IPILIMUMAB
     Dosage: 57.3 MILLIGRAM, ONE TIME DOSE
     Route: 041
     Dates: start: 20210115, end: 20210115
  23. ALIMTA [Suspect]
     Active Substance: PEMETREXED DISODIUM
     Dosage: 648 MILLIGRAM, ONE TIME DOSE
     Route: 065
     Dates: start: 20210115, end: 20210115
  24. NEXIUM [Concomitant]
     Active Substance: ESOMEPRAZOLE MAGNESIUM
     Indication: PROPHYLAXIS
     Dosage: AFTER BREAKFAST, QD
     Route: 065
     Dates: start: 20201209, end: 20201220
  25. LOXONIN [Concomitant]
     Active Substance: LOXOPROFEN SODIUM
     Indication: LUNG ADENOCARCINOMA
     Dosage: EVERY 8 HOURS(6:00AM/2:00PM/10:00PM) AND IN TIMES OF PAIN, TID
     Route: 065
     Dates: start: 20201208, end: 20201222
  26. HEPARINOID [Concomitant]
     Active Substance: CHONDROITIN SULFATE (BOVINE)
     Indication: PROPHYLAXIS
     Dosage: APPROPRIATE AMOUNT APPLICATION,SEVERAL TIMES A DAY,AFFECTED AREA,WHEN ITCHING,THE ITCHY SPOT
     Route: 065
     Dates: start: 20201208, end: 20201208
  27. DENOTAS [Concomitant]
     Active Substance: CALCIUM CARBONATE\CHOLECALCIFEROL\MAGNESIUM CARBONATE
     Indication: PROPHYLAXIS
     Dosage: UNK UNK, QD
     Route: 065
     Dates: start: 20201209, end: 20201229
  28. OPDIVO [Suspect]
     Active Substance: NIVOLUMAB
     Indication: LUNG ADENOCARCINOMA
     Dosage: UNK
     Route: 041
     Dates: start: 20201209, end: 20201220
  29. MAGLAX [MAGNESIUM OXIDE] [Concomitant]
     Indication: PRODUCT USED FOR UNKNOWN INDICATION
     Dosage: AFTER EVERY MEAL
     Route: 065
     Dates: start: 20201212, end: 20201223
  30. LIXIANA OD [Concomitant]
     Active Substance: EDOXABAN TOSYLATE
     Indication: PRODUCT USED FOR UNKNOWN INDICATION
     Dosage: AFTER SUPPER
     Route: 065
     Dates: start: 20201221, end: 20201228
  31. SEROQUEL [Concomitant]
     Active Substance: QUETIAPINE FUMARATE
     Indication: PRODUCT USED FOR UNKNOWN INDICATION
     Dosage: TIME REQUIRED,INDEFINITE
     Route: 065
  32. HIRUDOID [Concomitant]
     Active Substance: GLYCOSAMINOGLYCANS
     Dosage: UNK
     Route: 065
     Dates: start: 20201220
  33. OXINORM [OXYCODONE HYDROCHLORIDE] [Concomitant]
     Active Substance: OXYCODONE HYDROCHLORIDE
     Indication: LUNG ADENOCARCINOMA
     Dosage: IN TIMES OF PAIN
     Route: 065
     Dates: start: 20201217, end: 20201218

REACTIONS (8)
  - Neutrophil count decreased [Recovered/Resolved]
  - Febrile neutropenia [Recovered/Resolved]
  - Thrombocytopenia [Recovered/Resolved]
  - Epistaxis [Recovered/Resolved]
  - Blood creatinine increased [Recovered/Resolved]
  - White blood cell count decreased [Recovered/Resolved]
  - Pneumothorax [Recovered/Resolved]
  - Rash [Recovering/Resolving]

NARRATIVE: CASE EVENT DATE: 20201214
